FAERS Safety Report 4914077-8 (Version None)
Quarter: 2006Q1

REPORT INFORMATION
  Report Type: 
  Country: None (occurrence: None)
  Receive Date: 20060213
  Receipt Date: 20060131
  Transmission Date: 20060701
  Serious: Yes (Death, Other)
  Sender: FDA-Public Use
  Company Number: 2006011058

PATIENT
  Age: 83 Year
  Sex: Female

DRUGS (5)
  1. ZYVOX [Suspect]
     Indication: PNEUMONIA
     Dosage: 1200 MG (600 MG, 2 IN 1 D), INTRAVENOUS
     Route: 042
     Dates: start: 20060101, end: 20060114
  2. ZYVOX [Suspect]
     Indication: PNEUMONIA
     Dosage: 1200 MG (600 MG, 2 IN 1 D), INTRAVENOUS
     Route: 042
     Dates: start: 20060101, end: 20060114
  3. COLISTIN (COLISTIN) [Concomitant]
  4. MERONEM (MEROPENEM) [Concomitant]
  5. VANCOMYCIN [Concomitant]

REACTIONS (5)
  - INCREASED BRONCHIAL SECRETION [None]
  - OBSTRUCTIVE AIRWAYS DISORDER [None]
  - POST PROCEDURAL HAEMORRHAGE [None]
  - THROMBOCYTOPENIA [None]
  - THROMBOSIS [None]
